FAERS Safety Report 14925876 (Version 2)
Quarter: 2018Q2

REPORT INFORMATION
  Report Type: Report from Study
  Country: DE (occurrence: DE)
  Receive Date: 20180522
  Receipt Date: 20180628
  Transmission Date: 20180711
  Serious: Yes (Death, Hospitalization, Other)
  Sender: FDA-Public Use
  Company Number: PHHY2018DE054660

PATIENT
  Sex: Female
  Weight: 50 kg

DRUGS (2)
  1. AFINITOR [Suspect]
     Active Substance: EVEROLIMUS
     Indication: BREAST CANCER METASTATIC
     Dosage: 10 MG, QD (DAILY)
     Route: 048
     Dates: start: 20131029, end: 20131121
  2. EXEMESTANE. [Concomitant]
     Active Substance: EXEMESTANE
     Indication: BREAST CANCER METASTATIC
     Dosage: 25 MG, QD (DAILY)
     Route: 048
     Dates: start: 20131029, end: 20131204

REACTIONS (38)
  - Hemiparesis [Not Recovered/Not Resolved]
  - Klebsiella infection [Not Recovered/Not Resolved]
  - Mitral valve incompetence [Unknown]
  - Tricuspid valve incompetence [Unknown]
  - Arrhythmia [Unknown]
  - Microangiopathy [Unknown]
  - Ejection fraction decreased [Fatal]
  - Urine output decreased [Fatal]
  - Disturbance in attention [Unknown]
  - Candida infection [Not Recovered/Not Resolved]
  - Necrosis [Not Recovered/Not Resolved]
  - Myopathy [Not Recovered/Not Resolved]
  - Chronic kidney disease [Unknown]
  - Pleural effusion [Unknown]
  - Infection [Unknown]
  - Hyperlipidaemia [Unknown]
  - Blood cholesterol increased [Unknown]
  - Blood creatinine increased [Unknown]
  - White blood cell count increased [Unknown]
  - Serratia infection [Not Recovered/Not Resolved]
  - Normochromic anaemia [Unknown]
  - Decubitus ulcer [Unknown]
  - Acute coronary syndrome [Fatal]
  - Oedema [Fatal]
  - Polyneuropathy [Not Recovered/Not Resolved]
  - Leukoencephalopathy [Not Recovered/Not Resolved]
  - Respiratory failure [Unknown]
  - Blood uric acid increased [Unknown]
  - Renal failure [Fatal]
  - Respiratory tract infection [Not Recovered/Not Resolved]
  - Cardiac aneurysm [Unknown]
  - Arterial occlusive disease [Unknown]
  - Hypersensitivity [Unknown]
  - Acute myocardial infarction [Fatal]
  - Glomerular filtration rate decreased [Fatal]
  - Aortic valve disease mixed [Unknown]
  - General physical health deterioration [Unknown]
  - Blood urea increased [Unknown]

NARRATIVE: CASE EVENT DATE: 2017
